FAERS Safety Report 25717378 (Version 1)
Quarter: 2025Q3

REPORT INFORMATION
  Report Type: Report from Study
  Country: US (occurrence: US)
  Receive Date: 20250822
  Receipt Date: 20250822
  Transmission Date: 20251021
  Serious: Yes (Other)
  Sender: TEVA
  Company Number: US-TEVA-VS-3363880

PATIENT
  Age: 76 Year
  Sex: Male

DRUGS (1)
  1. BOSENTAN [Suspect]
     Active Substance: BOSENTAN
     Indication: Pulmonary arterial hypertension
     Dosage: 125 MG TABLETS 60/BO
     Route: 048
     Dates: start: 20210903

REACTIONS (5)
  - Nephrolithiasis [Unknown]
  - Hepatic steatosis [Unknown]
  - Cholecystitis acute [Unknown]
  - Cholelithiasis [Unknown]
  - Blood alkaline phosphatase increased [Unknown]

NARRATIVE: CASE EVENT DATE: 20250813
